FAERS Safety Report 6092112-4 (Version None)
Quarter: 2009Q1

REPORT INFORMATION
  Report Type: 
  Country: None (occurrence: None)
  Receive Date: 20090219
  Receipt Date: 20081023
  Transmission Date: 20090719
  Serious: No
  Sender: FDA-Public Use
  Company Number: WAES 0809USA03829

PATIENT
  Age: 65 Year
  Sex: Male
  Weight: 92.0802 kg

DRUGS (6)
  1. JANUVIA [Suspect]
     Indication: DIABETES MELLITUS
     Dosage: 100 MG/DAILY/PO
     Route: 048
     Dates: start: 20080428, end: 20080920
  2. ATACAND [Concomitant]
  3. LIPITOR [Concomitant]
  4. ZETIA [Concomitant]
  5. ATENOLOL [Concomitant]
  6. NAPROXEN [Concomitant]

REACTIONS (2)
  - PRURITUS [None]
  - RASH [None]
